FAERS Safety Report 25676625 (Version 1)
Quarter: 2025Q3

REPORT INFORMATION
  Report Type: Spontaneous
  Country: US (occurrence: None)
  Receive Date: 20250812
  Receipt Date: 20250812
  Transmission Date: 20251021
  Serious: No
  Sender: FDA-CTU
  Company Number: None

PATIENT
  Sex: Female

DRUGS (1)
  1. REMODULIN [Suspect]
     Active Substance: TREPROSTINIL
     Indication: Pulmonary arterial hypertension
     Route: 042
     Dates: start: 20230217

REACTIONS (7)
  - Device infusion issue [None]
  - Malaise [None]
  - Device issue [None]
  - Device leakage [None]
  - Dizziness [None]
  - Anxiety [None]
  - Stress [None]
